FAERS Safety Report 9490351 (Version 1)
Quarter: 2013Q3

REPORT INFORMATION
  Report Type: Spontaneous
  Country: US (occurrence: US)
  Receive Date: 20130830
  Receipt Date: 20130830
  Transmission Date: 20140515
  Serious: Yes (Other)
  Sender: FDA-Public Use
  Company Number: US-JNJFOC-20130813812

PATIENT
  Age: 59 Year
  Sex: Female

DRUGS (2)
  1. NICORETTE FRUIT CHILL OTC 4 MG [Suspect]
     Indication: SMOKING CESSATION THERAPY
     Route: 065
     Dates: start: 20091201
  2. NICODERM PATCH [Interacting]
     Indication: PRODUCT USED FOR UNKNOWN INDICATION
     Route: 065
     Dates: start: 2007

REACTIONS (10)
  - Suicidal ideation [Not Recovered/Not Resolved]
  - Depression [Not Recovered/Not Resolved]
  - Nicotine dependence [Not Recovered/Not Resolved]
  - Hiccups [Not Recovered/Not Resolved]
  - Feeling abnormal [Not Recovered/Not Resolved]
  - Drug interaction [Not Recovered/Not Resolved]
  - Intentional drug misuse [Not Recovered/Not Resolved]
  - Nightmare [Recovered/Resolved]
  - Drug administration error [Unknown]
  - Drug ineffective [Unknown]
